FAERS Safety Report 17440602 (Version 1)
Quarter: 2020Q1

REPORT INFORMATION
  Report Type: Spontaneous
  Country: US (occurrence: US)
  Receive Date: 20200220
  Receipt Date: 20200220
  Transmission Date: 20200409
  Serious: Yes (Death, Hospitalization)
  Sender: FDA-Public Use
  Company Number: US-MYLANLABS-2020M1018853

PATIENT
  Age: 49 Year
  Sex: Male

DRUGS (10)
  1. NOREPINEPHRINE. [Suspect]
     Active Substance: NOREPINEPHRINE
     Indication: HYPOTENSION
     Dosage: UNK
     Route: 065
  2. CALCIUM [Suspect]
     Active Substance: CALCIUM
     Indication: TOXICITY TO VARIOUS AGENTS
     Route: 065
  3. INSULIN [Suspect]
     Active Substance: INSULIN NOS
     Indication: TOXICITY TO VARIOUS AGENTS
     Dosage: UNK
     Route: 065
  4. GLUCAGON. [Suspect]
     Active Substance: GLUCAGON
     Indication: TOXICITY TO VARIOUS AGENTS
     Dosage: 1 MILLIGRAM
     Route: 065
  5. GLUCAGON. [Suspect]
     Active Substance: GLUCAGON
     Dosage: 5 MILLIGRAM
     Route: 065
  6. NOREPINEPHRINE. [Suspect]
     Active Substance: NOREPINEPHRINE
     Dosage: DOSE INCREASED
     Route: 065
  7. ATROPINE. [Suspect]
     Active Substance: ATROPINE
     Indication: BRADYCARDIA
     Route: 065
  8. VERAPAMIL [Suspect]
     Active Substance: VERAPAMIL HYDROCHLORIDE
     Indication: PRODUCT USED FOR UNKNOWN INDICATION
     Dosage: THE MAN INGESTED 50 TABLETS OF VERAPAMIL 180MG (EXTENDED RELEASE TABLET)
     Route: 048
  9. DOPAMINE [Suspect]
     Active Substance: DOPAMINE HYDROCHLORIDE
     Indication: SHOCK
     Route: 065
  10. INSULIN [Suspect]
     Active Substance: INSULIN NOS
     Dosage: DOSE INCREASED
     Route: 065

REACTIONS (9)
  - Vomiting [Fatal]
  - Hypotension [Fatal]
  - Intentional overdose [Fatal]
  - Drug ineffective [Fatal]
  - Completed suicide [Fatal]
  - Toxicity to various agents [Fatal]
  - Bradycardia [Fatal]
  - Cardiac arrest [Fatal]
  - Shock [Fatal]
